FAERS Safety Report 9291143 (Version 2)
Quarter: 2013Q4

REPORT INFORMATION
  Report Type: Spontaneous
  Country: US (occurrence: US)
  Receive Date: 20130515
  Receipt Date: 20131028
  Transmission Date: 20140711
  Serious: Yes (Death, Hospitalization, Other)
  Sender: FDA-Public Use
  Company Number: US-B.I. PHARMACEUTICALS,INC./RIDGEFIELD-2013-BI-13601BP

PATIENT
  Age: 81 Year
  Sex: Female
  Weight: 65.77 kg

DRUGS (4)
  1. PRADAXA [Suspect]
     Indication: ANTICOAGULANT THERAPY
     Dosage: 300 MG
     Dates: start: 20111108, end: 20120118
  2. PRADAXA [Suspect]
     Indication: HEART RATE IRREGULAR
  3. COREG [Concomitant]
     Dosage: 6.25 MG
  4. LASIX [Concomitant]
     Dosage: 20 MG
     Route: 048

REACTIONS (7)
  - Embolic stroke [Fatal]
  - Upper gastrointestinal haemorrhage [Unknown]
  - Haemorrhagic anaemia [Unknown]
  - Renal failure [Unknown]
  - Myocardial infarction [Unknown]
  - Pneumonia aspiration [Unknown]
  - Urinary tract infection [Recovered/Resolved]
